FAERS Safety Report 9034481 (Version 1)
Quarter: 2013Q1

REPORT INFORMATION
  Report Type: Spontaneous
  Country: US (occurrence: None)
  Receive Date: 20130116
  Receipt Date: 20130116
  Transmission Date: 20140127
  Serious: Yes (Hospitalization)
  Sender: FDA-Public Use
  Company Number: None

PATIENT
  Age: 59 Year
  Sex: Female

DRUGS (1)
  1. COPAXONE 20MG TEVA [Suspect]
     Dates: start: 20121220, end: 20121226

REACTIONS (3)
  - Urticaria [None]
  - Pharyngeal oedema [None]
  - Headache [None]
